FAERS Safety Report 24743753 (Version 3)
Quarter: 2025Q1

REPORT INFORMATION
  Report Type: Report from Study
  Country: US (occurrence: US)
  Receive Date: 20241217
  Receipt Date: 20250312
  Transmission Date: 20250409
  Serious: No
  Sender: AMGEN
  Company Number: US-AMGEN-USASP2024246403

PATIENT
  Age: 67 Year
  Sex: Female

DRUGS (11)
  1. OTEZLA [Suspect]
     Active Substance: APREMILAST
     Indication: Psoriatic arthropathy
     Dosage: 30 MILLIGRAM, BID
     Route: 065
     Dates: start: 20220216
  2. OTEZLA [Suspect]
     Active Substance: APREMILAST
     Indication: Psoriasis
     Route: 065
     Dates: start: 202411
  3. OTEZLA [Suspect]
     Active Substance: APREMILAST
     Indication: Psoriasis
  4. TACROLIMUS [Concomitant]
     Active Substance: TACROLIMUS
     Dosage: UNK UNK, BID
     Route: 061
     Dates: start: 20240307
  5. TRIAMCINOLONE ACETONIDE [Concomitant]
     Active Substance: TRIAMCINOLONE ACETONIDE
     Route: 061
     Dates: start: 20230419
  6. ZORYVE [Concomitant]
     Active Substance: ROFLUMILAST
     Dosage: UNK UNK, QD
     Route: 061
     Dates: start: 20240222
  7. ALPRAZOLAM [Concomitant]
     Active Substance: ALPRAZOLAM
     Route: 048
  8. CELEXA [Concomitant]
     Active Substance: CITALOPRAM HYDROBROMIDE
     Dosage: 10 MILLIGRAM, QD
     Route: 048
  9. CELEXA [Concomitant]
     Active Substance: CITALOPRAM HYDROBROMIDE
     Dosage: 20 MILLIGRAM, QD
     Route: 048
  10. NAPROXEN [Concomitant]
     Active Substance: NAPROXEN
  11. VITAMIN D [Concomitant]
     Active Substance: VITAMIN D NOS

REACTIONS (3)
  - Therapy partial responder [Unknown]
  - Therapy interrupted [Unknown]
  - Psoriasis [Unknown]

NARRATIVE: CASE EVENT DATE: 20221019
